FAERS Safety Report 18979771 (Version 3)
Quarter: 2021Q3

REPORT INFORMATION
  Report Type: Spontaneous
  Country: JP (occurrence: JP)
  Receive Date: 20210308
  Receipt Date: 20210702
  Transmission Date: 20211014
  Serious: Yes (Death, Life-Threatening, Hospitalization, Other)
  Sender: FDA-Public Use
  Company Number: JP-ASTRAZENECA-2021A051367

PATIENT
  Age: 58 Year
  Sex: Female
  Weight: 38 kg

DRUGS (1)
  1. LYNPARZA [Suspect]
     Active Substance: OLAPARIB
     Indication: PANCREATIC CARCINOMA
     Route: 048
     Dates: start: 20201008, end: 20210302

REACTIONS (9)
  - Septic shock [Fatal]
  - Platelet count decreased [Fatal]
  - Sepsis [Fatal]
  - Anaemia [Fatal]
  - SARS-CoV-2 test negative [Unknown]
  - Febrile neutropenia [Fatal]
  - Neutropenia [Fatal]
  - Cerebrovascular accident [Fatal]
  - Myelosuppression [Unknown]

NARRATIVE: CASE EVENT DATE: 2021
